FAERS Safety Report 11780248 (Version 1)
Quarter: 2015Q4

REPORT INFORMATION
  Report Type: Spontaneous
  Country: US (occurrence: US)
  Receive Date: 20151126
  Receipt Date: 20151126
  Transmission Date: 20160305
  Serious: No
  Sender: FDA-Public Use
  Company Number: US-JNJFOC-20151105404

PATIENT
  Age: 9 Year
  Sex: Female
  Weight: 26.31 kg

DRUGS (1)
  1. TYLENOL EXTRA STRENGTH [Suspect]
     Active Substance: ACETAMINOPHEN
     Indication: DENTAL DISCOMFORT
     Dosage: ONE CAPLET ONCE
     Route: 048
     Dates: start: 20151104, end: 20151104

REACTIONS (1)
  - Drug administered to patient of inappropriate age [Unknown]
